FAERS Safety Report 7545321-9 (Version None)
Quarter: 2011Q2

REPORT INFORMATION
  Report Type: 
  Country: None (occurrence: None)
  Receive Date: 20110613
  Receipt Date: 20110613
  Transmission Date: 20111010
  Serious: Yes (Life-Threatening, Hospitalization, Other)
  Sender: FDA-Public Use
  Company Number: None

PATIENT
  Age: 83 Year
  Sex: Male
  Weight: 73.3 kg

DRUGS (1)
  1. MORPHINE [Suspect]
     Indication: PAIN
     Dosage: 2MG Q1HR IV BOLUS  1 DOSE
     Route: 040
     Dates: start: 20110419, end: 20110419

REACTIONS (2)
  - HYPOTENSION [None]
  - ANAPHYLACTIC REACTION [None]
